FAERS Safety Report 9667964 (Version 1)
Quarter: 2013Q4

REPORT INFORMATION
  Report Type: Spontaneous
  Country: US (occurrence: US)
  Receive Date: 20131104
  Receipt Date: 20131104
  Transmission Date: 20140711
  Serious: Yes (Hospitalization)
  Sender: FDA-Public Use
  Company Number: US-GLAXOSMITHKLINE-A1047319A

PATIENT
  Sex: Female

DRUGS (20)
  1. FLOVENT [Suspect]
     Indication: BRONCHITIS CHRONIC
     Dosage: 1PUFF TWICE PER DAY
     Route: 055
     Dates: start: 1980
  2. SEREVENT [Suspect]
     Indication: CHRONIC OBSTRUCTIVE PULMONARY DISEASE
     Dosage: 1PUFF TWICE PER DAY
     Route: 055
     Dates: start: 1980
  3. VENTOLIN [Suspect]
     Indication: ASTHMA
     Dosage: 2PUFF TWICE PER DAY
     Route: 055
  4. VERAMYST [Suspect]
     Indication: RHINORRHOEA
     Dosage: 1SPR TWICE PER DAY
     Route: 045
     Dates: start: 2010
  5. PRO-AIR [Suspect]
     Indication: PRODUCT USED FOR UNKNOWN INDICATION
     Dosage: 2PUFF TWICE PER DAY
  6. LEVOTHYROXIN [Concomitant]
  7. THEOPHYLLINE ER [Concomitant]
  8. LISINOPRIL [Concomitant]
  9. FUROSEMIDE [Concomitant]
  10. OMEPRAZOLE [Concomitant]
  11. GABAPENTIN [Concomitant]
  12. GLIMEPIRIDE [Concomitant]
  13. PRIMIDONE [Concomitant]
  14. SPIRONOLACTONE [Concomitant]
  15. VITAMIN D [Concomitant]
  16. BABY ASPIRIN [Concomitant]
  17. MONTELUKAST [Concomitant]
  18. MAGNESIUM [Concomitant]
  19. MUCINEX [Concomitant]
  20. ULORIC [Concomitant]

REACTIONS (3)
  - Macular degeneration [Recovering/Resolving]
  - Rhinorrhoea [Recovering/Resolving]
  - Lung disorder [Recovering/Resolving]
